FAERS Safety Report 9500836 (Version 3)
Quarter: 2013Q4

REPORT INFORMATION
  Report Type: Spontaneous
  Country: US (occurrence: None)
  Receive Date: 20130107
  Receipt Date: 20131226
  Transmission Date: 20140711
  Serious: Yes (Other)
  Sender: FDA-Public Use
  Company Number: PHEH2012US019679

PATIENT
  Age: 44 Year
  Sex: Female
  Weight: 56.7 kg

DRUGS (6)
  1. GILENYA (FINGOLIMOD) CAPSULE, 0.5MG [Suspect]
     Indication: MULTIPLE SCLEROSIS
     Route: 048
     Dates: start: 20110927
  2. ZOLOFT (SERTRALINE HYDROCHLORIDE) [Concomitant]
  3. FENTANYL (FENTANYL) PATCH [Concomitant]
  4. CARDIZEM (DILTIAZEM HYDROCHLORIDE) [Concomitant]
  5. ALPRAZOLAM (ALPRAZOLAM) [Concomitant]
  6. FLOMAX ^BOEHRINGER INGELHEIM^ (TAMSULOSIN HYDROCHLORIDE) [Concomitant]

REACTIONS (10)
  - Malaise [None]
  - Influenza like illness [None]
  - Nausea [None]
  - Blood alkaline phosphatase increased [None]
  - Multiple sclerosis relapse [None]
  - Nasopharyngitis [None]
  - Memory impairment [None]
  - Cognitive disorder [None]
  - Visual impairment [None]
  - Vision blurred [None]
